FAERS Safety Report 5064767-4 (Version None)
Quarter: 2006Q3

REPORT INFORMATION
  Report Type: 
  Country: None (occurrence: None)
  Receive Date: 20060728
  Receipt Date: 20050105
  Transmission Date: 20061208
  Serious: Yes (Life-Threatening, Hospitalization, Other)
  Sender: FDA-Public Use
  Company Number: PHHO2005CA00593

PATIENT
  Sex: Female

DRUGS (11)
  1. PAXIL [Concomitant]
  2. TOPAMAX [Concomitant]
  3. HISTANTIL [Concomitant]
     Dosage: 50 MG, QHS
  4. DALMANE [Concomitant]
     Dosage: 30 MG, QHS
  5. AAS [Concomitant]
     Dosage: 80 MG, QD
  6. LOXAPAC [Concomitant]
     Dosage: 25 MG, QD
  7. AVANDIA [Concomitant]
     Dosage: 4 MG, QD
  8. GLUCOPHAGE [Concomitant]
  9. ALTACE [Concomitant]
     Dosage: 5 MG, QD
  10. EZETROL [Suspect]
     Dates: start: 20041001
  11. CLOZARIL [Suspect]
     Indication: SCHIZOPHRENIA
     Dosage: 500MG DAILY DOSE
     Route: 048
     Dates: start: 20040405, end: 20050103

REACTIONS (4)
  - COMA [None]
  - ENCEPHALOPATHY [None]
  - HEPATITIS [None]
  - INTUBATION [None]
